FAERS Safety Report 21629840 (Version 2)
Quarter: 2022Q4

REPORT INFORMATION
  Report Type: Spontaneous
  Country: TW (occurrence: TW)
  Receive Date: 20221122
  Receipt Date: 20221124
  Transmission Date: 20230113
  Serious: Yes (Death, Hospitalization, Other)
  Sender: FDA-Public Use
  Company Number: TW-ASTELLAS-2008000860

PATIENT
  Age: 57 Year
  Sex: Male

DRUGS (2)
  1. ERLOTINIB [Suspect]
     Active Substance: ERLOTINIB
     Indication: Lung adenocarcinoma
     Route: 048
     Dates: start: 20061122, end: 20070102
  2. GEFITINIB [Suspect]
     Active Substance: GEFITINIB
     Indication: Metastases to central nervous system
     Route: 065
     Dates: start: 200601, end: 20061122

REACTIONS (3)
  - Sepsis [Fatal]
  - Radiation skin injury [Recovering/Resolving]
  - Subdural haemorrhage [Not Recovered/Not Resolved]

NARRATIVE: CASE EVENT DATE: 20061216
